FAERS Safety Report 6902738-0 (Version None)
Quarter: 2010Q3

REPORT INFORMATION
  Report Type: 
  Country: None (occurrence: None)
  Receive Date: 20100803
  Receipt Date: 20080812
  Transmission Date: 20110219
  Serious: No
  Sender: FDA-Public Use
  Company Number: US-PFIZER INC-2008067818

PATIENT
  Age: 76 Year
  Sex: Female

DRUGS (3)
  1. LYRICA [Suspect]
     Indication: FIBROMYALGIA
     Dates: start: 20071201
  2. CYMBALTA [Concomitant]
  3. DRUG, UNSPECIFIED [Concomitant]

REACTIONS (5)
  - BLISTER [None]
  - CONSTIPATION [None]
  - DRUG INEFFECTIVE [None]
  - PAIN [None]
  - PRURITUS [None]
